FAERS Safety Report 17420623 (Version 2)
Quarter: 2020Q1

REPORT INFORMATION
  Report Type: Spontaneous
  Country: US (occurrence: US)
  Receive Date: 20200214
  Receipt Date: 20200226
  Transmission Date: 20200409
  Serious: No
  Sender: FDA-Public Use
  Company Number: US-PFIZER INC-2018439241

PATIENT
  Age: 69 Year
  Sex: Female

DRUGS (1)
  1. FLECTOR [Suspect]
     Active Substance: DICLOFENAC EPOLAMINE
     Indication: MYALGIA
     Dosage: 1 DF, AS NEEDED, [APPLY 1 PATCH 2 TIMES BYTRANSDERMAL ROUTE AS NEEDED FOR 90 DAYS]
     Route: 062

REACTIONS (1)
  - Arthropathy [Unknown]
